FAERS Safety Report 21469198 (Version 1)
Quarter: 2022Q4

REPORT INFORMATION
  Report Type: Spontaneous
  Country: PL (occurrence: PL)
  Receive Date: 20221018
  Receipt Date: 20221018
  Transmission Date: 20230112
  Serious: Yes (Hospitalization)
  Sender: FDA-Public Use
  Company Number: PL-ARISTO PHARMA-PARA202209261

PATIENT
  Age: 42 Year
  Sex: Male

DRUGS (11)
  1. ACETAMINOPHEN [Suspect]
     Active Substance: ACETAMINOPHEN
     Indication: Myalgia
     Dosage: 1 GRAM, FOUR TIMES/DAY(1 GRAM 4 TIMES A DAY)
     Route: 065
  2. DROTAVERINE [Concomitant]
     Active Substance: DROTAVERINE
     Indication: Myalgia
     Dosage: 80 MILLIGRAM, 3 TIMES A DAY(80 MG THREE TIMES A DAY)
     Route: 065
  3. ASPIRIN [Concomitant]
     Active Substance: ASPIRIN
     Indication: Acute coronary syndrome
     Dosage: 150 MILLIGRAM, ONCE A DAY(QD: ONCE A DAY)
     Route: 065
  4. OMEPRAZOLE [Concomitant]
     Active Substance: OMEPRAZOLE
     Indication: Myalgia
     Dosage: 80 MILLIGRAM, ONCE A DAY(QD: ONCE A DAY)
     Route: 065
  5. OMEPRAZOLE [Concomitant]
     Active Substance: OMEPRAZOLE
     Indication: Antiplatelet therapy
     Dosage: 40 MILLIGRAM, ONCE A DAY(QD: ONCE A DAY)
     Route: 065
  6. CLOPIDOGREL [Concomitant]
     Active Substance: CLOPIDOGREL BISULFATE
     Indication: Acute coronary syndrome
     Dosage: 75 MILLIGRAM, ONCE A DAY(QD: ONCE A DAY)
     Route: 065
  7. BUPROPION [Concomitant]
     Active Substance: BUPROPION
     Indication: Depressive symptom
     Dosage: 300 MILLIGRAM, ONCE A DAY(QD: ONCE A DAY)
     Route: 065
  8. ITRACONAZOLE [Concomitant]
     Active Substance: ITRACONAZOLE
     Indication: Onychomycosis
     Dosage: 200 MILLIGRAM, TWO TIMES A DAY(200 MG TWICE DAILY)
     Route: 065
  9. ZOFENOPRIL [Concomitant]
     Active Substance: ZOFENOPRIL
     Indication: Acute coronary syndrome
     Dosage: 7.5 MILLIGRAM, ONCE A DAY(QD: ONCE A DAY)
  10. NEBIVOLOL [Concomitant]
     Active Substance: NEBIVOLOL
     Indication: Acute coronary syndrome
     Dosage: 5 MILLIGRAM, ONCE A DAY(QD: ONCE A DAY)
     Route: 065
  11. MEMANTINE [Concomitant]
     Active Substance: MEMANTINE
     Indication: Memory impairment
     Dosage: 10 MILLIGRAM, ONCE A DAY(QD: ONCE A DAY)
     Route: 065

REACTIONS (3)
  - Myalgia [Recovered/Resolved]
  - Abdominal pain [Recovered/Resolved]
  - Medication error [Recovered/Resolved]
